FAERS Safety Report 8611370-2 (Version None)
Quarter: 2012Q3

REPORT INFORMATION
  Report Type: 
  Country: None (occurrence: None)
  Receive Date: 20120822
  Receipt Date: 20120614
  Transmission Date: 20120928
  Serious: Yes (Other)
  Sender: FDA-Public Use
  Company Number: US-BAYER-2012-059361

PATIENT
  Sex: Female

DRUGS (1)
  1. ALEVE (CAPLET) [Suspect]
     Dosage: UNK

REACTIONS (6)
  - PYREXIA [None]
  - BODY TEMPERATURE INCREASED [None]
  - RASH VESICULAR [None]
  - HERPES ZOSTER [None]
  - PAIN [None]
  - PAIN IN EXTREMITY [None]
